FAERS Safety Report 20771774 (Version 1)
Quarter: 2022Q2

REPORT INFORMATION
  Report Type: Spontaneous
  Country: US (occurrence: US)
  Receive Date: 20220430
  Receipt Date: 20220430
  Transmission Date: 20220721
  Serious: No
  Sender: FDA-Public Use
  Company Number: US-drreddys-SPO/USA/22/0149487

PATIENT
  Age: 41 Year
  Sex: Female

DRUGS (2)
  1. ACCUTANE [Suspect]
     Active Substance: ISOTRETINOIN
     Indication: Acne
     Dosage: RMA ISSUE DATE: 18 FEBRUARY 2022 04:22:40 PM, 23 MARCH 2022 03:56:05 PM
  2. Amneal isotretinoin [Concomitant]
     Indication: Product used for unknown indication
     Dosage: RMA ISSUE DATE: 22 JANUARY 2022 03:14:17 PM

REACTIONS (1)
  - Adverse drug reaction [Unknown]
